FAERS Safety Report 5479670-5 (Version None)
Quarter: 2007Q4

REPORT INFORMATION
  Report Type: 
  Country: None (occurrence: None)
  Receive Date: 20071008
  Receipt Date: 20071002
  Transmission Date: 20080405
  Serious: Yes (Life-Threatening)
  Sender: FDA-Public Use
  Company Number: B0489911A

PATIENT
  Age: 58 Year
  Sex: Male

DRUGS (1)
  1. AUGMENTIN '125' [Suspect]
     Indication: INFECTION PROPHYLAXIS
     Dosage: 1G PER DAY
     Route: 042
     Dates: start: 20070923, end: 20070923

REACTIONS (4)
  - ANAPHYLACTIC SHOCK [None]
  - BRONCHOSPASM [None]
  - ERYTHEMA [None]
  - HYPOTENSION [None]
